FAERS Safety Report 8924451 (Version 2)
Quarter: 2012Q4

REPORT INFORMATION
  Report Type: 
  Country: US (occurrence: US)
  Receive Date: 20121126
  Receipt Date: 20121128
  Transmission Date: 20130627
  Serious: Yes (Death)
  Sender: FDA-Public Use
  Company Number: PHHY2012US107973

PATIENT
  Age: 37 Year
  Sex: Female

DRUGS (4)
  1. FLUOXETINE [Suspect]
  2. METHADONE [Suspect]
  3. PHENYTOIN [Suspect]
  4. NORFLUOXETINE [Suspect]

REACTIONS (1)
  - Toxicity to various agents [Fatal]
